APPROVED DRUG PRODUCT: LACOSAMIDE
Active Ingredient: LACOSAMIDE
Strength: 200MG/20ML (10MG/ML)
Dosage Form/Route: SOLUTION;INTRAVENOUS
Application: A216806 | Product #001 | TE Code: AP
Applicant: HIKMA PHARMACEUTICALS USA INC
Approved: Apr 5, 2024 | RLD: No | RS: No | Type: RX